FAERS Safety Report 9190786 (Version 3)
Quarter: 2014Q2

REPORT INFORMATION
  Report Type: Spontaneous
  Country: JP (occurrence: JP)
  Receive Date: 20130326
  Receipt Date: 20140515
  Transmission Date: 20141212
  Serious: Yes (Life-Threatening, Hospitalization, Other)
  Sender: FDA-Public Use
  Company Number: JP-ASTRAZENECA-2013SE18907

PATIENT
  Age: 55 Year
  Sex: Female

DRUGS (2)
  1. XYLOCAINE JELLY [Suspect]
     Indication: LOCAL ANAESTHESIA
     Route: 054
     Dates: start: 20130307, end: 20130307
  2. GLYCERIN [Suspect]
     Route: 054
     Dates: start: 20130307

REACTIONS (1)
  - Anaphylactic shock [Recovered/Resolved]
